FAERS Safety Report 22127428 (Version 1)
Quarter: 2023Q1

REPORT INFORMATION
  Report Type: Spontaneous
  Country: US (occurrence: US)
  Receive Date: 20230322
  Receipt Date: 20230322
  Transmission Date: 20230418
  Serious: No
  Sender: FDA-Public Use
  Company Number: US-ALLERGAN-2229440US

PATIENT
  Sex: Female
  Weight: 81 kg

DRUGS (6)
  1. BENTYL [Suspect]
     Active Substance: DICYCLOMINE HYDROCHLORIDE
     Indication: Gastric disorder
  2. COMIRNATY [Suspect]
     Active Substance: TOZINAMERAN
     Indication: Product used for unknown indication
     Dosage: UNK
     Dates: start: 20220801, end: 20220801
  3. COMIRNATY [Suspect]
     Active Substance: TOZINAMERAN
     Dosage: UNK
     Dates: start: 20211009, end: 20211009
  4. COMIRNATY [Suspect]
     Active Substance: TOZINAMERAN
     Dosage: UNK
     Dates: start: 20210227, end: 20210227
  5. COMIRNATY [Suspect]
     Active Substance: TOZINAMERAN
     Dosage: UNK
     Dates: start: 20210206, end: 20210206
  6. METOPROLOL [Concomitant]
     Active Substance: METOPROLOL
     Indication: Blood pressure measurement

REACTIONS (2)
  - Off label use [Unknown]
  - Drug ineffective for unapproved indication [Unknown]
